FAERS Safety Report 5444129-8 (Version None)
Quarter: 2007Q3

REPORT INFORMATION
  Report Type: 
  Country: None (occurrence: None)
  Receive Date: 20070831
  Receipt Date: 20070829
  Transmission Date: 20080115
  Serious: Yes (Hospitalization)
  Sender: FDA-Public Use
  Company Number: GRT 2007-12926

PATIENT
  Age: 35 Year
  Sex: Female
  Weight: 55 kg

DRUGS (2)
  1. LIDOCAINE [Suspect]
     Indication: NEURALGIA
     Dosage: 4 PATCHES A DAY
     Dates: start: 20070525
  2. PREGABALIN [Suspect]
     Indication: NEURALGIA
     Dosage: 75 MG, 2/DAY
     Dates: start: 20070621

REACTIONS (16)
  - ABDOMINAL PAIN [None]
  - ARTHROPOD BITE [None]
  - BORRELIA BURGDORFERI SEROLOGY POSITIVE [None]
  - CHOLANGITIS [None]
  - DYSPEPSIA [None]
  - ESCHERICHIA INFECTION [None]
  - HEADACHE [None]
  - HEPATIC ENZYME INCREASED [None]
  - ILL-DEFINED DISORDER [None]
  - LEUKOCYTOSIS [None]
  - OBSTRUCTION [None]
  - POLYNEUROPATHY [None]
  - RED BLOOD CELL SEDIMENTATION RATE INCREASED [None]
  - SHIFT TO THE LEFT [None]
  - TRANSAMINASES INCREASED [None]
  - VOMITING [None]
